FAERS Safety Report 5935359-7 (Version None)
Quarter: 2008Q4

REPORT INFORMATION
  Report Type: 
  Country: None (occurrence: None)
  Receive Date: 20081029
  Receipt Date: 20081029
  Transmission Date: 20090506
  Serious: Yes (Other)
  Sender: FDA-Public Use
  Company Number: None

PATIENT
  Age: 41 Year
  Sex: Female
  Weight: 61.2356 kg

DRUGS (1)
  1. ZOMIG [Suspect]
     Indication: MIGRAINE
     Dosage: 1 EVERY 2 HRS IF NEE PO
     Route: 048

REACTIONS (2)
  - NO THERAPEUTIC RESPONSE [None]
  - PARADOXICAL DRUG REACTION [None]
